FAERS Safety Report 5490634-8 (Version None)
Quarter: 2007Q4

REPORT INFORMATION
  Report Type: 
  Country: None (occurrence: None)
  Receive Date: 20071019
  Receipt Date: 20071012
  Transmission Date: 20080405
  Serious: Yes (Other)
  Sender: FDA-Public Use
  Company Number: CA-ASTRAZENECA-2007UW07005

PATIENT
  Age: 24 Year
  Sex: Male

DRUGS (2)
  1. PULMICORT [Suspect]
     Route: 055
     Dates: start: 20010203
  2. SALBUTAMOL [Concomitant]
     Route: 055
     Dates: start: 20010203

REACTIONS (2)
  - BLOOD ALCOHOL INCREASED [None]
  - BREATH ODOUR [None]
